FAERS Safety Report 13209050 (Version 1)
Quarter: 2017Q1

REPORT INFORMATION
  Report Type: Spontaneous
  Country: BR (occurrence: BR)
  Receive Date: 20170209
  Receipt Date: 20170209
  Transmission Date: 20170428
  Serious: Yes (Other)
  Sender: FDA-Public Use
  Company Number: BR-TEVA-736139ISR

PATIENT
  Sex: Female

DRUGS (1)
  1. ACTONEL [Suspect]
     Active Substance: RISEDRONATE SODIUM
     Dates: start: 20170128

REACTIONS (5)
  - Abasia [Unknown]
  - Pyrexia [Unknown]
  - Diarrhoea [Unknown]
  - Myalgia [Unknown]
  - Vomiting [Unknown]

NARRATIVE: CASE EVENT DATE: 20170128
